FAERS Safety Report 7979242-4 (Version None)
Quarter: 2011Q4

REPORT INFORMATION
  Report Type: 
  Country: None (occurrence: None)
  Receive Date: 20111214
  Receipt Date: 20111214
  Transmission Date: 20120403
  Serious: Yes (Death, Life-Threatening, Hospitalization, Disabling, Other)
  Sender: FDA-Public Use
  Company Number: None

PATIENT
  Age: 3 Year
  Sex: Female
  Weight: 13 kg

DRUGS (2)
  1. CHLORAL HYDRATE [Suspect]
     Indication: DENTAL OPERATION
     Dosage: 900 MG -70 MG/KG-
     Route: 048
     Dates: start: 20111209, end: 20111209
  2. CHLORAL HYDRATE [Suspect]
     Indication: SEDATION
     Dosage: 900 MG -70 MG/KG-
     Route: 048
     Dates: start: 20111209, end: 20111209

REACTIONS (5)
  - BLOOD PRESSURE SYSTOLIC DECREASED [None]
  - CARDIAC ARREST [None]
  - SOMNOLENCE [None]
  - UNRESPONSIVE TO STIMULI [None]
  - APNOEA [None]
